FAERS Safety Report 9349761 (Version 1)
Quarter: 2013Q2

REPORT INFORMATION
  Report Type: Spontaneous
  Country: CH (occurrence: CH)
  Receive Date: 20130614
  Receipt Date: 20130614
  Transmission Date: 20140414
  Serious: Yes (Hospitalization)
  Sender: FDA-Public Use
  Company Number: CH-ASTRAZENECA-2013SE41104

PATIENT
  Age: 59 Year
  Sex: Female

DRUGS (9)
  1. BELOC-ZOC COMP [Suspect]
     Indication: TACHYCARDIA
     Dosage: 75 MG UNKNOWN FREQUENCY
     Route: 048
     Dates: start: 20130301
  2. ABILIFY [Interacting]
     Indication: PSYCHOTIC DISORDER
     Route: 048
     Dates: start: 2006
  3. DAFALGAN [Interacting]
     Indication: PAIN
     Route: 048
     Dates: start: 20130322, end: 20130409
  4. CO AMOXICILLIN [Interacting]
     Indication: PNEUMONIA BACTERIAL
     Route: 048
     Dates: start: 20130320, end: 20130326
  5. EUTHYROX [Concomitant]
     Indication: HYPOTHYROIDISM
     Route: 048
  6. CLEXANE [Concomitant]
     Indication: EMBOLISM ARTERIAL
     Route: 058
     Dates: start: 201303
  7. CLEXANE [Concomitant]
     Indication: ARTERIAL THROMBOSIS
     Route: 058
     Dates: start: 201303
  8. LAXOBERON [Concomitant]
     Indication: CONSTIPATION
     Route: 048
     Dates: start: 201303
  9. QUETIAPINE [Concomitant]

REACTIONS (5)
  - Drug interaction [Unknown]
  - Pneumonia bacterial [Recovered/Resolved]
  - Humerus fracture [Not Recovered/Not Resolved]
  - Hepatic enzyme increased [Recovering/Resolving]
  - Off label use [Unknown]
